FAERS Safety Report 12248105 (Version 1)
Quarter: 2016Q2

REPORT INFORMATION
  Report Type: Spontaneous
  Country: JP (occurrence: JP)
  Receive Date: 20160408
  Receipt Date: 20160408
  Transmission Date: 20160815
  Serious: Yes (Other)
  Sender: FDA-Public Use
  Company Number: JP-PFIZER INC-2015314959

PATIENT
  Age: 77 Year
  Sex: Male

DRUGS (2)
  1. XALKORI [Suspect]
     Active Substance: CRIZOTINIB
     Dosage: 200 MG, ALTERNATE DAY
     Route: 048
  2. XALKORI [Suspect]
     Active Substance: CRIZOTINIB
     Indication: NON-SMALL CELL LUNG CANCER
     Dosage: 500 MG, DAILY
     Route: 048
     Dates: start: 20150824

REACTIONS (3)
  - Renal impairment [Unknown]
  - Hepatic function abnormal [Recovering/Resolving]
  - Diarrhoea [Recovering/Resolving]
